FAERS Safety Report 4576495-X (Version None)
Quarter: 2005Q1

REPORT INFORMATION
  Report Type: 
  Country: None (occurrence: None)
  Receive Date: 20050119
  Receipt Date: 20040407
  Transmission Date: 20050727
  Serious: Yes (Other)
  Sender: FDA-Public Use
  Company Number: A03200401091

PATIENT
  Age: 78 Year
  Sex: Male
  Weight: 53.5244 kg

DRUGS (9)
  1. PLAVIX [Suspect]
     Indication: CEREBROVASCULAR ACCIDENT
     Dosage: 75 MG QD - ORAL
     Route: 048
     Dates: start: 20030211
  2. ACETYLSALICYLIC ACID [Concomitant]
  3. FUROSEMIDE [Concomitant]
  4. POTASSIUM CHLORIDE [Concomitant]
  5. FLUOXETINE HYDROCHLORIDE [Concomitant]
  6. MULTI-VITAMINS [Concomitant]
  7. GARLIC [Concomitant]
  8. FISH OIL [Concomitant]
  9. DEFLAZACORT [Concomitant]

REACTIONS (1)
  - CEREBROVASCULAR ACCIDENT [None]
